FAERS Safety Report 22040424 (Version 1)
Quarter: 2023Q1

REPORT INFORMATION
  Report Type: Spontaneous
  Country: US (occurrence: US)
  Receive Date: 20230227
  Receipt Date: 20230227
  Transmission Date: 20230418
  Serious: Yes (Hospitalization)
  Sender: FDA-Public Use
  Company Number: US-UCBSA-2023009812

PATIENT
  Sex: Male

DRUGS (1)
  1. CIMZIA [Suspect]
     Active Substance: CERTOLIZUMAB PEGOL
     Indication: Psoriasis
     Dosage: 200 MILLIGRAM PER MILLILITRE, EV 2 WEEKS(QOW)
     Route: 058
     Dates: start: 20210820

REACTIONS (7)
  - Tremor [Unknown]
  - Body temperature increased [Unknown]
  - Back pain [Unknown]
  - Urinary tract infection [Unknown]
  - Joint stiffness [Unknown]
  - Nervous system disorder [Unknown]
  - Epidural injection [Unknown]
